FAERS Safety Report 7395161-9 (Version None)
Quarter: 2011Q2

REPORT INFORMATION
  Report Type: 
  Country: None (occurrence: None)
  Receive Date: 20110405
  Receipt Date: 20110325
  Transmission Date: 20111010
  Serious: Yes (Other)
  Sender: FDA-Public Use
  Company Number: PHHY2011US25026

PATIENT
  Sex: Female

DRUGS (8)
  1. LANTUS [Concomitant]
     Dosage: UNK
  2. ASCORBIC ACID [Concomitant]
     Dosage: UNK
  3. DIOVAN HCT [Concomitant]
     Dosage: UNK
  4. CRANBERRY FRUIT SUPPLEMENT [Concomitant]
  5. TEKTURNA [Suspect]
     Dosage: 150 MG, BID
     Dates: start: 20110322
  6. METANX [Concomitant]
     Dosage: UNK
  7. TEKTURNA [Suspect]
     Dosage: 150 MG, QD
  8. NOVOLOG [Concomitant]
     Dosage: UNK

REACTIONS (5)
  - VOMITING [None]
  - GLOMERULAR FILTRATION RATE DECREASED [None]
  - BLOOD CREATININE DECREASED [None]
  - BLOOD UREA INCREASED [None]
  - RENAL PAIN [None]
